FAERS Safety Report 16537898 (Version 6)
Quarter: 2019Q4

REPORT INFORMATION
  Report Type: Spontaneous
  Country: US (occurrence: US)
  Receive Date: 20190708
  Receipt Date: 20191010
  Transmission Date: 20200122
  Serious: Yes (Hospitalization, Other)
  Sender: FDA-Public Use
  Company Number: US-SA-2019SA178321

PATIENT
  Age: 55 Year

DRUGS (12)
  1. PROTONIX [Concomitant]
     Active Substance: PANTOPRAZOLE SODIUM
     Dosage: 40 MG, QD
     Route: 048
     Dates: start: 20190810
  2. FOLIC ACID. [Concomitant]
     Active Substance: FOLIC ACID
     Dosage: 1 MG, QD
     Route: 048
     Dates: start: 20190616
  3. TOPROL XL [Concomitant]
     Active Substance: METOPROLOL SUCCINATE
     Indication: CARDIOMYOPATHY
     Dosage: 25 MG, QD
     Route: 048
     Dates: start: 20180511
  4. SYNTHROID [Concomitant]
     Active Substance: LEVOTHYROXINE SODIUM
     Indication: BASEDOW^S DISEASE
     Dosage: 137 UG, QD, QAM
     Route: 048
     Dates: start: 20190616
  5. NAPROSYN [Concomitant]
     Active Substance: NAPROXEN
     Indication: BREAKTHROUGH PAIN
     Dosage: 375 MG, BID
     Route: 048
     Dates: start: 20180511
  6. LEMTRADA [Suspect]
     Active Substance: ALEMTUZUMAB
     Indication: MULTIPLE SCLEROSIS
     Dosage: UNK
     Route: 041
     Dates: start: 201806, end: 201806
  7. KLOR-CON M20 [Concomitant]
     Active Substance: POTASSIUM CHLORIDE
     Dosage: 20 MEQ, QD
     Route: 048
     Dates: start: 20190810
  8. FOLIC ACID. [Concomitant]
     Active Substance: FOLIC ACID
     Dosage: 1 MG, QD
     Route: 048
     Dates: start: 20190810
  9. HEXAVITAMIN [VITAMINS NOS] [Concomitant]
     Dosage: 1 TABLET, QD
     Route: 048
     Dates: start: 20190810
  10. ZESTRIL [Concomitant]
     Active Substance: LISINOPRIL
     Indication: HYPERTENSION
     Dosage: 5 MG, QD
     Route: 048
     Dates: start: 20190810
  11. CALTRATE WITH VITAMIN D [Concomitant]
     Active Substance: CALCIUM CARBONATE\CHOLECALCIFEROL
     Dosage: 1 TABLET, QD
     Route: 048
     Dates: start: 20180511
  12. LOVENOX [Concomitant]
     Active Substance: ENOXAPARIN SODIUM
     Indication: PROPHYLAXIS
     Dosage: 40 MG, QD
     Route: 058
     Dates: start: 20180511

REACTIONS (28)
  - Blood smear test abnormal [Unknown]
  - Blood calcium decreased [Recovered/Resolved]
  - Diarrhoea [Unknown]
  - Asthenia [Unknown]
  - Haptoglobin decreased [Unknown]
  - Carbon dioxide decreased [Recovered/Resolved]
  - Blood chloride increased [Not Recovered/Not Resolved]
  - Red cell distribution width increased [Recovered/Resolved]
  - Monocyte count decreased [Recovered/Resolved]
  - Autoimmune haemolytic anaemia [Unknown]
  - Red blood cell count decreased [Not Recovered/Not Resolved]
  - Immature granulocyte percentage increased [Recovered/Resolved]
  - Blood lactate dehydrogenase increased [Unknown]
  - Deep vein thrombosis [Unknown]
  - Pain in extremity [Unknown]
  - Chest pain [Recovered/Resolved]
  - Herpes simplex [Unknown]
  - Fatigue [Unknown]
  - Reticulocyte count increased [Unknown]
  - Haemoglobin decreased [Not Recovered/Not Resolved]
  - Culture urine positive [Unknown]
  - Blood test abnormal [Unknown]
  - Epilepsy [Unknown]
  - Urinary tract infection [Unknown]
  - Urine analysis abnormal [Unknown]
  - Coeliac disease [Unknown]
  - Platelet count decreased [Not Recovered/Not Resolved]
  - Dyspnoea exertional [Recovered/Resolved]

NARRATIVE: CASE EVENT DATE: 2019
